FAERS Safety Report 5635798-8 (Version None)
Quarter: 2008Q1

REPORT INFORMATION
  Report Type: 
  Country: None (occurrence: None)
  Receive Date: 20080221
  Receipt Date: 20080207
  Transmission Date: 20080703
  Serious: Yes (Hospitalization)
  Sender: FDA-Public Use
  Company Number: S08-FRA-00578-01

PATIENT
  Age: 80 Year
  Sex: Female

DRUGS (1)
  1. MEMANTINE HCL [Suspect]
     Indication: DEMENTIA ALZHEIMER'S TYPE
     Dosage: 20 MG,QD,PO
     Route: 048
     Dates: start: 20070101, end: 20080101

REACTIONS (3)
  - DIZZINESS [None]
  - EPILEPSY [None]
  - MALAISE [None]
